FAERS Safety Report 16302941 (Version 2)
Quarter: 2020Q4

REPORT INFORMATION
  Report Type: Spontaneous
  Country: US (occurrence: US)
  Receive Date: 20190513
  Receipt Date: 20201211
  Transmission Date: 20210113
  Serious: Yes (Death, Hospitalization, Other)
  Sender: FDA-Public Use
  Company Number: US-ASTRAZENECA-2019SE65260

PATIENT
  Age: 25219 Day
  Sex: Male
  Weight: 104.3 kg

DRUGS (48)
  1. PRILOSEC [Suspect]
     Active Substance: OMEPRAZOLE MAGNESIUM
     Indication: GASTROOESOPHAGEAL REFLUX DISEASE
     Route: 065
     Dates: start: 20030211, end: 20131102
  2. PRILOSEC [Suspect]
     Active Substance: OMEPRAZOLE MAGNESIUM
     Indication: GASTROOESOPHAGEAL REFLUX DISEASE
     Route: 065
     Dates: start: 20081219, end: 20120216
  3. PREVACID [Suspect]
     Active Substance: LANSOPRAZOLE
     Indication: GASTROOESOPHAGEAL REFLUX DISEASE
     Route: 065
     Dates: start: 19960620, end: 20030321
  4. PLAVIX [Concomitant]
     Active Substance: CLOPIDOGREL BISULFATE
     Indication: CARDIOVASCULAR DISORDER
     Dates: start: 2010, end: 2011
  5. GABAPENTIN. [Concomitant]
     Active Substance: GABAPENTIN
  6. NORCO [Concomitant]
     Active Substance: ACETAMINOPHEN\HYDROCODONE BITARTRATE
  7. ACTOPLUS MET [Concomitant]
     Active Substance: METFORMIN HYDROCHLORIDE\PIOGLITAZONE HYDROCHLORIDE
  8. ACETAMENOPHEN [Concomitant]
  9. METOPROLOL. [Concomitant]
     Active Substance: METOPROLOL
     Indication: HYPERTENSION
     Dates: start: 1997
  10. RAMIPRIL. [Concomitant]
     Active Substance: RAMIPRIL
  11. NITROSTAT [Concomitant]
     Active Substance: NITROGLYCERIN
  12. PREVACID [Suspect]
     Active Substance: LANSOPRAZOLE
     Indication: GASTROOESOPHAGEAL REFLUX DISEASE
     Route: 065
     Dates: start: 199605, end: 199709
  13. LANTUS [Concomitant]
     Active Substance: INSULIN GLARGINE
  14. NOVOLOG [Concomitant]
     Active Substance: INSULIN ASPART
  15. ZALEPLON. [Concomitant]
     Active Substance: ZALEPLON
  16. NEXIUM [Suspect]
     Active Substance: ESOMEPRAZOLE MAGNESIUM
     Indication: GASTROOESOPHAGEAL REFLUX DISEASE
     Route: 048
     Dates: start: 20090622, end: 20170214
  17. PRILOSEC [Suspect]
     Active Substance: OMEPRAZOLE MAGNESIUM
     Indication: GASTROOESOPHAGEAL REFLUX DISEASE
     Route: 048
     Dates: start: 19981014, end: 20030103
  18. PREVACID [Suspect]
     Active Substance: LANSOPRAZOLE
     Indication: GASTROOESOPHAGEAL REFLUX DISEASE
     Route: 065
     Dates: start: 20110516, end: 20170214
  19. ZANTAC [Concomitant]
     Active Substance: RANITIDINE HYDROCHLORIDE
     Dates: start: 19960220, end: 19960525
  20. FUROSEMIDE. [Concomitant]
     Active Substance: FUROSEMIDE
  21. TAMSULOSIN [Concomitant]
     Active Substance: TAMSULOSIN
  22. PREDNISONE. [Concomitant]
     Active Substance: PREDNISONE
  23. LISINOPRIL. [Concomitant]
     Active Substance: LISINOPRIL
  24. STIOLTO RESPIMAT [Concomitant]
     Active Substance: OLODATEROL HYDROCHLORIDE\TIOTROPIUM BROMIDE MONOHYDRATE
  25. ACTOS [Concomitant]
     Active Substance: PIOGLITAZONE HYDROCHLORIDE
  26. ZOSTAVAX [Concomitant]
     Active Substance: VARICELLA-ZOSTER VIRUS STRAIN OKA/MERCK LIVE ANTIGEN
  27. ZOLPIDEM [Concomitant]
     Active Substance: ZOLPIDEM TARTRATE
  28. GLIMEPIRIDE. [Concomitant]
     Active Substance: GLIMEPIRIDE
  29. PANTOPRAZOLE [Suspect]
     Active Substance: PANTOPRAZOLE
     Indication: GASTROOESOPHAGEAL REFLUX DISEASE
     Route: 065
     Dates: start: 20100411, end: 20100816
  30. LEVOTHYROXIN [Concomitant]
     Active Substance: LEVOTHYROXINE
     Indication: THYROID DISORDER
     Dates: start: 2012
  31. PEPTO-BISMOL [Concomitant]
     Active Substance: BISMUTH SUBSALICYLATE
     Dosage: AS NEEDED
     Dates: start: 19951025, end: 19960123
  32. CYCLOBENZAPR [Concomitant]
     Active Substance: CYCLOBENZAPRINE
  33. INVOKANA [Concomitant]
     Active Substance: CANAGLIFLOZIN
  34. NEXIUM [Suspect]
     Active Substance: ESOMEPRAZOLE MAGNESIUM
     Indication: GASTROOESOPHAGEAL REFLUX DISEASE
     Route: 048
     Dates: start: 199605, end: 199709
  35. PRILOSEC [Suspect]
     Active Substance: OMEPRAZOLE MAGNESIUM
     Indication: GASTROOESOPHAGEAL REFLUX DISEASE
     Route: 048
     Dates: start: 20110516, end: 20170214
  36. MICARDIS [Concomitant]
     Active Substance: TELMISARTAN
  37. SYNTHROID [Concomitant]
     Active Substance: LEVOTHYROXINE SODIUM
  38. PROAIR HFA [Concomitant]
     Active Substance: ALBUTEROL SULFATE
  39. NAPROXEN. [Concomitant]
     Active Substance: NAPROXEN
  40. LOVASTATIN. [Concomitant]
     Active Substance: LOVASTATIN
  41. IMDUR [Concomitant]
     Active Substance: ISOSORBIDE MONONITRATE
  42. COREG [Concomitant]
     Active Substance: CARVEDILOL
  43. PRILOSEC [Suspect]
     Active Substance: OMEPRAZOLE MAGNESIUM
     Indication: GASTROOESOPHAGEAL REFLUX DISEASE
     Route: 048
     Dates: start: 199605, end: 199709
  44. AMLODIPINE [Concomitant]
     Active Substance: AMLODIPINE BESYLATE
  45. METFORMIN [Concomitant]
     Active Substance: METFORMIN HYDROCHLORIDE
  46. TRICOR [Concomitant]
     Active Substance: FENOFIBRATE
  47. CEPHALEXIN. [Concomitant]
     Active Substance: CEPHALEXIN
  48. SYMBICORT [Concomitant]
     Active Substance: BUDESONIDE\FORMOTEROL FUMARATE DIHYDRATE

REACTIONS (3)
  - End stage renal disease [Unknown]
  - Renal failure [Unknown]
  - Chronic kidney disease [Not Recovered/Not Resolved]

NARRATIVE: CASE EVENT DATE: 20110126
